FAERS Safety Report 5564082-6 (Version None)
Quarter: 2007Q4

REPORT INFORMATION
  Report Type: 
  Country: None (occurrence: None)
  Receive Date: 20071217
  Receipt Date: 20071207
  Transmission Date: 20080405
  Serious: Yes (Other)
  Sender: FDA-Public Use
  Company Number: AU-GENENTECH-250826

PATIENT
  Sex: Male

DRUGS (2)
  1. LUCENTIS [Suspect]
     Indication: MACULAR DEGENERATION
     Dosage: UNK, 1/MONTH
     Route: 031
     Dates: start: 20060901, end: 20061101
  2. LUCENTIS [Suspect]
     Dosage: UNK, Q2M
     Route: 031
     Dates: start: 20061101

REACTIONS (1)
  - BLINDNESS [None]
